FAERS Safety Report 6415837-7 (Version None)
Quarter: 2009Q4

REPORT INFORMATION
  Report Type: 
  Country: None (occurrence: None)
  Receive Date: 20091027
  Receipt Date: 20091015
  Transmission Date: 20100525
  Serious: Yes (Death, Other)
  Sender: FDA-Public Use
  Company Number: GB-GILEAD-E2B_00000460

PATIENT
  Sex: Male

DRUGS (3)
  1. AMBRISENTAN [Suspect]
     Indication: PULMONARY ARTERIAL HYPERTENSION
     Dates: start: 20090626, end: 20090921
  2. WARFARIN SODIUM [Concomitant]
  3. FUROSEMIDE [Concomitant]

REACTIONS (5)
  - BLINDNESS UNILATERAL [None]
  - DEATH [None]
  - EYE HAEMORRHAGE [None]
  - PLATELET COUNT DECREASED [None]
  - VISUAL ACUITY REDUCED [None]
